FAERS Safety Report 20540071 (Version 1)
Quarter: 2022Q1

REPORT INFORMATION
  Report Type: Spontaneous
  Country: US (occurrence: US)
  Receive Date: 20220302
  Receipt Date: 20220302
  Transmission Date: 20220423
  Serious: Yes (Other)
  Sender: FDA-Public Use
  Company Number: US-SANOFI-00992678

PATIENT
  Age: 79 Year
  Sex: Female

DRUGS (2)
  1. TOUJEO MAX [Suspect]
     Active Substance: INSULIN GLARGINE
     Indication: Type 2 diabetes mellitus
     Dosage: 16 IU, QH
  2. TOUJEO MAX [Suspect]
     Active Substance: INSULIN GLARGINE
     Dosage: 10 IU, QH

REACTIONS (4)
  - Cataract [Unknown]
  - Blood glucose increased [Unknown]
  - Spinal operation [Unknown]
  - Visual impairment [Unknown]
